FAERS Safety Report 5223383-1 (Version None)
Quarter: 2007Q1

REPORT INFORMATION
  Report Type: 
  Country: None (occurrence: None)
  Receive Date: 20070124
  Receipt Date: 20070112
  Transmission Date: 20070707
  Serious: Yes (Hospitalization)
  Sender: FDA-Public Use
  Company Number: DK-GDP-0613914

PATIENT
  Age: 65 Year
  Sex: Male

DRUGS (1)
  1. METVIXIA [Suspect]
     Indication: ACTINIC KERATOSIS
     Dosage: 1 APP ONCE TP
     Route: 061
     Dates: start: 20061005, end: 20061005

REACTIONS (5)
  - DERMATITIS CONTACT [None]
  - DRUG HYPERSENSITIVITY [None]
  - INTERNATIONAL NORMALISED RATIO INCREASED [None]
  - PRODUCTIVE COUGH [None]
  - SKIN BURNING SENSATION [None]
